FAERS Safety Report 7723655-2 (Version None)
Quarter: 2011Q3

REPORT INFORMATION
  Report Type: 
  Country: None (occurrence: None)
  Receive Date: 20110901
  Receipt Date: 20110831
  Transmission Date: 20111222
  Serious: Yes (Hospitalization, Other)
  Sender: FDA-Public Use
  Company Number: DE-ABBOTT-11P-062-0836911-00

PATIENT
  Sex: Male
  Weight: 85 kg

DRUGS (2)
  1. DICLOFENAC SODIUM [Concomitant]
     Indication: PAIN
  2. HUMIRA [Suspect]
     Indication: ANKYLOSING SPONDYLITIS
     Route: 058
     Dates: start: 20100104, end: 20101115

REACTIONS (2)
  - INFLAMMATION [None]
  - WEIGHT DECREASED [None]
